FAERS Safety Report 4801538-5 (Version None)
Quarter: 2005Q4

REPORT INFORMATION
  Report Type: 
  Country: None (occurrence: None)
  Receive Date: 20051018
  Receipt Date: 20050902
  Transmission Date: 20060501
  Serious: Yes (Hospitalization, Other)
  Sender: FDA-Public Use
  Company Number: PHHO2005BE14048

PATIENT
  Age: 65 Year
  Sex: Male

DRUGS (4)
  1. DIOVAN HCT [Suspect]
     Indication: HYPERTENSION
     Dosage: 160/12.5MG
     Route: 048
     Dates: start: 20050101
  2. SINTROM [Concomitant]
  3. CLOMID [Concomitant]
  4. LANITOP [Concomitant]

REACTIONS (7)
  - ASCITES [None]
  - CARDIAC FAILURE [None]
  - CARDIOVERSION [None]
  - IMPLANTABLE DEFIBRILLATOR INSERTION [None]
  - PULMONARY OEDEMA [None]
  - RENAL FAILURE [None]
  - VENTRICULAR TACHYCARDIA [None]
